FAERS Safety Report 23610681 (Version 1)
Quarter: 2024Q1

REPORT INFORMATION
  Report Type: Spontaneous
  Country: US (occurrence: US)
  Receive Date: 20240308
  Receipt Date: 20240308
  Transmission Date: 20240410
  Serious: No
  Sender: FDA-Public Use
  Company Number: US-NEURELIS, INC.-2023NEU000073

PATIENT

DRUGS (2)
  1. VALTOCO [Suspect]
     Active Substance: DIAZEPAM
     Indication: Generalised tonic-clonic seizure
     Dosage: UNK, QWEEK
     Route: 065
  2. VALTOCO [Suspect]
     Active Substance: DIAZEPAM
     Dosage: UNK, QWEEK
     Route: 065

REACTIONS (2)
  - Product storage error [Unknown]
  - Drug ineffective [Unknown]

NARRATIVE: CASE EVENT DATE: 20230714
